FAERS Safety Report 9311077 (Version 1)
Quarter: 2013Q2

REPORT INFORMATION
  Report Type: Spontaneous
  Country: US (occurrence: US)
  Receive Date: 20130528
  Receipt Date: 20130528
  Transmission Date: 20140414
  Serious: No
  Sender: FDA-Public Use
  Company Number: US-PFIZER INC-2013160078

PATIENT
  Age: 34 Year
  Sex: Male

DRUGS (3)
  1. LYRICA [Suspect]
     Dosage: 150 MG, 2X/DAY
  2. PAROXETINE [Concomitant]
     Dosage: 20 MG, UNK
  3. METHYLPHENIDATE [Concomitant]
     Dosage: UNK

REACTIONS (2)
  - Attention deficit/hyperactivity disorder [Unknown]
  - Brachial plexus injury [Unknown]
